FAERS Safety Report 17941502 (Version 5)
Quarter: 2021Q1

REPORT INFORMATION
  Report Type: Spontaneous
  Country: FR (occurrence: FR)
  Receive Date: 20200624
  Receipt Date: 20210114
  Transmission Date: 20210419
  Serious: Yes (Hospitalization, Other)
  Sender: FDA-Public Use
  Company Number: FR-PFIZER INC-2020240479

PATIENT
  Age: 48 Year
  Sex: Male
  Weight: 98 kg

DRUGS (6)
  1. COLCHICINE. [Suspect]
     Active Substance: COLCHICINE
     Indication: POLYARTHRITIS
     Dosage: UNK (50 TO 60 MG)
  2. COLCHICINE. [Suspect]
     Active Substance: COLCHICINE
     Indication: GOUT
  3. IBUPROFEN. [Suspect]
     Active Substance: IBUPROFEN
     Indication: POLYARTHRITIS
     Dosage: 8 G
  4. KETOPROFEN. [Suspect]
     Active Substance: KETOPROFEN
     Indication: POLYARTHRITIS
     Dosage: 2 G
  5. ALLOPURINOL. [Suspect]
     Active Substance: ALLOPURINOL
     Indication: POLYARTHRITIS
     Dosage: 200 MG, DAILY
  6. PARACETAMOL [Suspect]
     Active Substance: ACETAMINOPHEN
     Indication: POLYARTHRITIS
     Dosage: UNK (8 TO 16 G)

REACTIONS (12)
  - Thrombocytopenia [Recovering/Resolving]
  - Anaemia [Recovering/Resolving]
  - Diarrhoea [Recovering/Resolving]
  - Alopecia [Recovering/Resolving]
  - Acute hepatic failure [Recovering/Resolving]
  - Poisoning deliberate [Recovering/Resolving]
  - Renal impairment [Recovering/Resolving]
  - Hepatocellular injury [Recovering/Resolving]
  - Metabolic acidosis [Recovering/Resolving]
  - Leukopenia [Recovering/Resolving]
  - Vomiting [Recovering/Resolving]
  - Intentional overdose [Recovering/Resolving]
